FAERS Safety Report 10172381 (Version 3)
Quarter: 2014Q4

REPORT INFORMATION
  Report Type: Report from Study
  Country: US (occurrence: US)
  Receive Date: 20140515
  Receipt Date: 20141006
  Transmission Date: 20150528
  Serious: No
  Sender: FDA-Public Use
  Company Number: US-ALEXION-A201401776

PATIENT

DRUGS (10)
  1. SOLIRIS [Suspect]
     Active Substance: ECULIZUMAB
     Indication: PAROXYSMAL NOCTURNAL HAEMOGLOBINURIA
     Dosage: 900 MG, Q2W
     Route: 042
     Dates: start: 20090709
  2. COUMADIN [Concomitant]
     Active Substance: WARFARIN SODIUM
     Indication: ANTICOAGULANT THERAPY
     Dosage: UNK, QD
     Route: 065
     Dates: start: 20100101
  3. FOLATE [Concomitant]
     Active Substance: FOLATE SODIUM
     Indication: VITAMIN SUPPLEMENTATION
     Dosage: 2 MG, QD
     Route: 065
     Dates: start: 20100101
  4. FERROUS SULFATE [Concomitant]
     Active Substance: FERROUS SULFATE\FERROUS SULFATE, DRIED
     Indication: MINERAL SUPPLEMENTATION
     Dosage: 325 MG, BID
     Route: 065
     Dates: start: 20100101
  5. MAG [Concomitant]
     Indication: PRODUCT USED FOR UNKNOWN INDICATION
     Dosage: UNK, QD
     Route: 065
     Dates: start: 20131001
  6. PREDNISONE. [Concomitant]
     Active Substance: PREDNISONE
     Indication: STEROID THERAPY
     Dosage: 40-30 MG, QD
     Route: 065
     Dates: start: 20100101
  7. FISH OIL [Concomitant]
     Active Substance: FISH OIL
     Indication: PRODUCT USED FOR UNKNOWN INDICATION
     Dosage: 1 DF, QD
     Route: 065
     Dates: start: 20100101
  8. TESTOSTERONE. [Concomitant]
     Active Substance: TESTOSTERONE
     Indication: HORMONE REPLACEMENT THERAPY
     Dosage: UNK, QD
     Route: 065
     Dates: start: 20101203
  9. VITAMIN D                          /00107901/ [Concomitant]
     Active Substance: ERGOCALCIFEROL
     Indication: PRODUCT USED FOR UNKNOWN INDICATION
     Dosage: 400 IU, QD
     Route: 065
     Dates: start: 20100101
  10. CALCIUM [Concomitant]
     Active Substance: CALCIUM
     Indication: PRODUCT USED FOR UNKNOWN INDICATION
     Dosage: 1200 MG, QD
     Route: 065
     Dates: start: 20100101

REACTIONS (10)
  - Haemolysis [Not Recovered/Not Resolved]
  - Fatigue [Not Recovered/Not Resolved]
  - Depressed level of consciousness [Not Recovered/Not Resolved]
  - Influenza like illness [Not Recovered/Not Resolved]
  - Chest pain [Unknown]
  - Oesophageal disorder [Not Recovered/Not Resolved]
  - Hypersensitivity [Unknown]
  - Flushing [Not Recovered/Not Resolved]
  - Confusional state [Not Recovered/Not Resolved]
  - Stress [Unknown]

NARRATIVE: CASE EVENT DATE: 201309
